FAERS Safety Report 6098033-5 (Version None)
Quarter: 2009Q1

REPORT INFORMATION
  Report Type: 
  Country: None (occurrence: None)
  Receive Date: 20090227
  Receipt Date: 20090219
  Transmission Date: 20090719
  Serious: Yes (Hospitalization)
  Sender: FDA-Public Use
  Company Number: PHHY2009FR04986

PATIENT
  Sex: Male

DRUGS (6)
  1. PROLEUKIN [Suspect]
     Indication: RENAL CANCER
     Dosage: 18 MILLION UNITS/M2/DAY
     Route: 042
     Dates: start: 20090207, end: 20090210
  2. PROLEUKIN [Suspect]
     Indication: METASTATIC MALIGNANT MELANOMA
     Dosage: UNK
     Route: 042
  3. PERFALGAN [Concomitant]
     Indication: HYPERTHERMIA
     Dosage: 4 G/DAY
     Route: 042
     Dates: start: 20090207, end: 20090211
  4. ZOPHREN [Concomitant]
     Indication: VOMITING
     Dosage: 8 MG, BID
     Route: 042
     Dates: start: 20090207, end: 20090211
  5. LARGACTIL [Concomitant]
     Indication: VOMITING
     Dosage: 26 MG/DAY
     Route: 042
     Dates: start: 20090207, end: 20090211
  6. DEXERYL [Concomitant]

REACTIONS (10)
  - ANOREXIA [None]
  - ASTHENIA [None]
  - BLOOD CREATININE INCREASED [None]
  - C-REACTIVE PROTEIN INCREASED [None]
  - DIARRHOEA [None]
  - DRY SKIN [None]
  - HYPERTHERMIA [None]
  - HYPONATRAEMIA [None]
  - STRAWBERRY TONGUE [None]
  - WEIGHT INCREASED [None]
